FAERS Safety Report 9799574 (Version 2)
Quarter: 2014Q1

REPORT INFORMATION
  Report Type: Spontaneous
  Country: US (occurrence: US)
  Receive Date: 20140106
  Receipt Date: 20140106
  Transmission Date: 20141002
  Serious: Yes (Hospitalization)
  Sender: FDA-Public Use
  Company Number: US-GILEAD-2010-0030210

PATIENT
  Sex: Female

DRUGS (17)
  1. LETAIRIS [Suspect]
     Indication: PULMONARY ARTERIAL HYPERTENSION
     Route: 048
     Dates: start: 201003
  2. REVATIO [Concomitant]
  3. LASIX [Concomitant]
  4. LISINOPRIL [Concomitant]
  5. ATENOLOL [Concomitant]
  6. ASA [Concomitant]
  7. NOVOLOG [Concomitant]
  8. ZETIA [Concomitant]
  9. PRAVASTATIN [Concomitant]
  10. ALLOPURINOL [Concomitant]
  11. KLOR-CON [Concomitant]
  12. PREMARIN [Concomitant]
  13. ZOLOFT [Concomitant]
  14. XANAX [Concomitant]
  15. ETODOLAC [Concomitant]
  16. VICODIN [Concomitant]
  17. TRAMADOL HCL [Concomitant]

REACTIONS (4)
  - Fluid retention [Unknown]
  - Dyspnoea [Unknown]
  - Weight increased [Unknown]
  - Local swelling [Unknown]
